FAERS Safety Report 11519866 (Version 1)
Quarter: 2015Q3

REPORT INFORMATION
  Report Type: Spontaneous
  Country: CA (occurrence: None)
  Receive Date: 20150917
  Receipt Date: 20150917
  Transmission Date: 20151125
  Serious: Yes (Hospitalization)
  Sender: FDA-Public Use
  Company Number: None

PATIENT
  Age: 12 Year
  Sex: Male
  Weight: 41.7 kg

DRUGS (8)
  1. VINCRISTINE SULFATE. [Suspect]
     Active Substance: VINCRISTINE SULFATE
     Dates: end: 20150901
  2. DOXORUBICIN HYDROCHLORIDE. [Suspect]
     Active Substance: DOXORUBICIN HYDROCHLORIDE
     Dates: end: 20150804
  3. DEXAMETHASONE. [Suspect]
     Active Substance: DEXAMETHASONE
     Dates: end: 20150810
  4. HYDROCORTISONE. [Suspect]
     Active Substance: HYDROCORTISONE
     Route: 037
     Dates: end: 20150825
  5. METHOTREXATE [Suspect]
     Active Substance: METHOTREXATE
     Route: 037
     Dates: end: 20150825
  6. CYTARABINE. [Suspect]
     Active Substance: CYTARABINE
     Dosage: 90MG GIVEN INTRATHECAL, 800MG GIVEN 08/18/2015/-08/25/2015 SQ
     Dates: end: 20150828
  7. CYCLOPHOSPHAMIDE. [Suspect]
     Active Substance: CYCLOPHOSPHAMIDE
     Dates: end: 20150818
  8. THIOGUANINE (6-TG) [Suspect]
     Active Substance: THIOGUANINE
     Dates: end: 20150831

REACTIONS (16)
  - Febrile neutropenia [None]
  - Cerebral infarction [None]
  - Computerised tomogram head abnormal [None]
  - Aphasia [None]
  - Gliosis [None]
  - Tongue paralysis [None]
  - Seizure [None]
  - Pain in extremity [None]
  - Muscle contractions involuntary [None]
  - Inappropriate affect [None]
  - Protrusion tongue [None]
  - Postictal paralysis [None]
  - Muscular weakness [None]
  - Medical device site thrombosis [None]
  - Dysarthria [None]
  - Cerebellar syndrome [None]

NARRATIVE: CASE EVENT DATE: 20150902
